FAERS Safety Report 9507661 (Version 1)
Quarter: 2013Q1

REPORT INFORMATION
  Report Type: Spontaneous
  Country: US (occurrence: None)
  Receive Date: 20130305
  Receipt Date: 20130305
  Transmission Date: 20140127
  Serious: Yes (Other)
  Sender: FDA-Public Use
  Company Number: 163-21880-12050718

PATIENT
  Age: 71 Year
  Sex: Male
  Weight: 73.03 kg

DRUGS (9)
  1. REVLIMID [Suspect]
     Indication: MYELODYSPLASTIC SYNDROME
     Dosage: 10 MG, 1 IN 1 D, PO
     Route: 048
     Dates: start: 20120308
  2. ALPRAZOLAM [Concomitant]
  3. ASPIRIN (ACETYLSALICYLIC ACID) [Concomitant]
  4. CELEBREX (CELECOXIB) [Concomitant]
  5. CELEXA (CITALOPRAM HYDROBROMIDE) [Concomitant]
  6. GLIMEPIRIDE [Concomitant]
  7. MULTIVITAMINS [Concomitant]
  8. PROCRIT [Concomitant]
  9. EXJADE (DEFERASIROX) [Concomitant]

REACTIONS (3)
  - Phlebitis [None]
  - Pain in extremity [None]
  - Rash [None]
